FAERS Safety Report 15074773 (Version 1)
Quarter: 2018Q2

REPORT INFORMATION
  Report Type: Spontaneous
  Country: US (occurrence: US)
  Receive Date: 20180627
  Receipt Date: 20180627
  Transmission Date: 20180711
  Serious: Yes (Hospitalization)
  Sender: FDA-Public Use
  Company Number: US-SAOL THERAPEUTICS-2017SAO01321

PATIENT
  Age: 16 Year
  Sex: Male

DRUGS (2)
  1. BACLOFEN. [Suspect]
     Active Substance: BACLOFEN
     Indication: MUSCLE SPASTICITY
     Dosage: 924 ?G, \DAY
     Route: 037
  2. BACLOFEN. [Suspect]
     Active Substance: BACLOFEN
     Indication: SPINAL CORD INJURY

REACTIONS (6)
  - Hypotension [Recovered/Resolved]
  - Overdose [Recovered/Resolved]
  - Bradycardia [Recovered/Resolved]
  - Device alarm issue [Unknown]
  - Depressed level of consciousness [Recovered/Resolved]
  - Device infusion issue [Unknown]

NARRATIVE: CASE EVENT DATE: 20170622
